FAERS Safety Report 11303230 (Version 2)
Quarter: 2015Q3

REPORT INFORMATION
  Report Type: Spontaneous
  Country: US (occurrence: US)
  Receive Date: 20150723
  Receipt Date: 20150819
  Transmission Date: 20151125
  Serious: Yes (Other)
  Sender: FDA-Public Use
  Company Number: US-TEVA-579897USA

PATIENT
  Age: 66 Year
  Sex: Female

DRUGS (4)
  1. XALKORI [Suspect]
     Active Substance: CRIZOTINIB
     Indication: NON-SMALL CELL LUNG CANCER METASTATIC
     Dosage: 500 MILLIGRAM DAILY;
     Route: 048
     Dates: start: 20150523
  2. CISPLATIN. [Suspect]
     Active Substance: CISPLATIN
     Indication: PRODUCT USED FOR UNKNOWN INDICATION
     Dosage: DOSE AND FREQUENCY NOT PROVIDED
     Route: 065
  3. ETOPOSIDE. [Concomitant]
     Active Substance: ETOPOSIDE
     Dates: start: 201411, end: 201502
  4. LYRICA [Concomitant]
     Active Substance: PREGABALIN

REACTIONS (5)
  - Ovarian cancer [Recovering/Resolving]
  - Non-small cell lung cancer metastatic [Unknown]
  - Neuralgia [Recovered/Resolved with Sequelae]
  - Neuropathy peripheral [Recovered/Resolved with Sequelae]
  - Dizziness [Unknown]

NARRATIVE: CASE EVENT DATE: 201505
